FAERS Safety Report 6102593-5 (Version None)
Quarter: 2009Q1

REPORT INFORMATION
  Report Type: 
  Country: None (occurrence: None)
  Receive Date: 20090304
  Receipt Date: 20080918
  Transmission Date: 20090719
  Serious: No
  Sender: FDA-Public Use
  Company Number: A0748149A

PATIENT
  Age: 76 Year
  Sex: Male

DRUGS (9)
  1. REQUIP [Suspect]
     Indication: RESTLESS LEGS SYNDROME
     Dosage: 25MG PER DAY
     Route: 048
     Dates: start: 20080801
  2. SINEMET [Concomitant]
  3. PROTONIX [Concomitant]
  4. LEVOXYL [Concomitant]
  5. KLONOPIN [Concomitant]
  6. DIGOXIN [Concomitant]
  7. ZOCOR [Concomitant]
  8. ARICEPT [Concomitant]
  9. WARFARIN SODIUM [Concomitant]

REACTIONS (2)
  - DECREASED ACTIVITY [None]
  - SOMNOLENCE [None]
